FAERS Safety Report 5473010-3 (Version None)
Quarter: 2007Q4

REPORT INFORMATION
  Report Type: 
  Country: None (occurrence: None)
  Receive Date: 20071001
  Receipt Date: 20070212
  Transmission Date: 20080405
  Serious: Yes (Other)
  Sender: FDA-Public Use
  Company Number: US-ASTRAZENECA-2007UW02863

PATIENT
  Age: 68 Year
  Sex: Female

DRUGS (3)
  1. ARIMIDEX [Suspect]
     Indication: BREAST CANCER
     Dates: start: 20010101, end: 20061201
  2. CALCIUM INFUSION [Concomitant]
  3. NEXIUM [Concomitant]

REACTIONS (1)
  - BREAST CANCER METASTATIC [None]
